FAERS Safety Report 5265734-8 (Version None)
Quarter: 2007Q1

REPORT INFORMATION
  Report Type: 
  Country: None (occurrence: None)
  Receive Date: 20061213
  Receipt Date: 20030206
  Transmission Date: 20070707
  Serious: No
  Sender: FDA-Public Use
  Company Number: 2003UW01318

PATIENT
  Age: 61 Year
  Sex: Female
  Weight: 49.8957 kg

DRUGS (2)
  1. TAMOXIFEN CITRATE [Suspect]
     Indication: BREAST CANCER
     Dates: start: 19990101
  2. ACYCLOVIR [Concomitant]

REACTIONS (3)
  - CATARACT [None]
  - RETINAL DEPOSITS [None]
  - VISUAL DISTURBANCE [None]
